FAERS Safety Report 7332744-6 (Version None)
Quarter: 2011Q1

REPORT INFORMATION
  Report Type: 
  Country: None (occurrence: None)
  Receive Date: 20110304
  Receipt Date: 20110223
  Transmission Date: 20110831
  Serious: No
  Sender: FDA-Public Use
  Company Number: US-TYCO HEALTHCARE/MALLINCKRODT-T201100526

PATIENT
  Sex: Female
  Weight: 63.492 kg

DRUGS (1)
  1. RESTORIL [Suspect]
     Indication: INSOMNIA
     Dosage: 1 CAPSULE AT BEDTIME
     Route: 048
     Dates: start: 20110204

REACTIONS (2)
  - SLEEP DISORDER [None]
  - PANIC ATTACK [None]
